FAERS Safety Report 5261309-5 (Version None)
Quarter: 2007Q1

REPORT INFORMATION
  Report Type: 
  Country: None (occurrence: None)
  Receive Date: 20070307
  Receipt Date: 20070222
  Transmission Date: 20070707
  Serious: Yes (Hospitalization)
  Sender: FDA-Public Use
  Company Number: 2007BI004305

PATIENT
  Age: 45 Year
  Sex: Female

DRUGS (3)
  1. AVONEX [Suspect]
     Indication: MULTIPLE SCLEROSIS
     Dosage: 30 UG; QW; IM
     Route: 030
     Dates: start: 20070222, end: 20070222
  2. METHADONE HCL [Concomitant]
  3. OXYCODONE HCL [Concomitant]

REACTIONS (7)
  - BACK PAIN [None]
  - CONDITION AGGRAVATED [None]
  - DIZZINESS [None]
  - EYE DISORDER [None]
  - MULTIPLE SCLEROSIS [None]
  - MUSCLE SPASMS [None]
  - VOMITING [None]
